FAERS Safety Report 11049135 (Version 1)
Quarter: 2015Q2

REPORT INFORMATION
  Report Type: Spontaneous
  Country: DK (occurrence: DE)
  Receive Date: 20150420
  Receipt Date: 20150420
  Transmission Date: 20150821
  Serious: Yes (Other)
  Sender: FDA-Public Use
  Company Number: DE-FRI-1000075962

PATIENT
  Age: 83 Year
  Sex: Female
  Weight: 50 kg

DRUGS (2)
  1. MEMANTINE [Suspect]
     Active Substance: MEMANTINE
     Indication: DEMENTIA ALZHEIMER^S TYPE
     Dosage: 20 MG
     Route: 048
  2. RISPERDAL [Concomitant]
     Active Substance: RISPERIDONE
     Indication: HYPOMANIA
     Dosage: 0.5 MG

REACTIONS (5)
  - Confusional state [Unknown]
  - Indifference [Recovering/Resolving]
  - Poor personal hygiene [Unknown]
  - Aphasia [Unknown]
  - Bedridden [Unknown]

NARRATIVE: CASE EVENT DATE: 201412
